FAERS Safety Report 11709598 (Version 2)
Quarter: 2015Q4

REPORT INFORMATION
  Report Type: Spontaneous
  Country: US (occurrence: US)
  Receive Date: 20151104
  Receipt Date: 20151110
  Transmission Date: 20160304
  Serious: No
  Sender: FDA-Public Use
  Company Number: US-ELI_LILLY_AND_COMPANY-US201109001123

PATIENT
  Age: 47 Year
  Sex: Female

DRUGS (1)
  1. FORTEO [Suspect]
     Active Substance: TERIPARATIDE
     Indication: OSTEOPOROSIS
     Dosage: 20 UG, QD
     Dates: start: 201108, end: 20110901

REACTIONS (14)
  - Throat irritation [Recovering/Resolving]
  - Fear [Unknown]
  - Hypercalcaemia [Unknown]
  - Hypotension [Unknown]
  - Pruritus [Unknown]
  - Visual acuity reduced [Unknown]
  - Vomiting [Recovered/Resolved]
  - Wheezing [Unknown]
  - Swollen tongue [Unknown]
  - Constipation [Not Recovered/Not Resolved]
  - Pruritus generalised [Recovering/Resolving]
  - Oral pruritus [Recovering/Resolving]
  - Nausea [Unknown]
  - Dyspnoea [Unknown]

NARRATIVE: CASE EVENT DATE: 20110831
